FAERS Safety Report 4675446-7 (Version None)
Quarter: 2005Q2

REPORT INFORMATION
  Report Type: 
  Country: None (occurrence: None)
  Receive Date: 20050527
  Receipt Date: 20050309
  Transmission Date: 20051028
  Serious: Yes (Other)
  Sender: FDA-Public Use
  Company Number: US-BRISTOL-MYERS SQUIBB COMPANY-12891578

PATIENT
  Age: 46 Year
  Sex: Male
  Weight: 103 kg

DRUGS (3)
  1. ABILIFY [Suspect]
     Indication: SCHIZOAFFECTIVE DISORDER
     Dosage: 1/2 OF A 10 MG TABLET
     Route: 048
     Dates: start: 20040715, end: 20040805
  2. DEPAKOTE ER [Concomitant]
  3. ZYPREXA [Concomitant]
     Dosage: (WEANING)20 MG TO 10 MG

REACTIONS (1)
  - ABDOMINAL PAIN [None]
